FAERS Safety Report 4919727-8 (Version None)
Quarter: 2006Q1

REPORT INFORMATION
  Report Type: 
  Country: None (occurrence: None)
  Receive Date: 20060113
  Receipt Date: 20051101
  Transmission Date: 20060701
  Serious: No
  Sender: FDA-Public Use
  Company Number: 2005SP003768

PATIENT
  Age: 65 Year
  Sex: Female

DRUGS (7)
  1. LUNESTA [Suspect]
     Dosage: 3 MG;HS;ORAL
     Route: 048
     Dates: start: 20051029
  2. RESTORIL [Concomitant]
  3. NEXIUM [Concomitant]
  4. ATORVASTATIN CALCIUM [Concomitant]
  5. ALLEGRA [Concomitant]
  6. PULMICORT [Concomitant]
  7. BEPANTHEN PLUS [Concomitant]

REACTIONS (3)
  - DRUG INEFFECTIVE [None]
  - INITIAL INSOMNIA [None]
  - SOMNOLENCE [None]
